FAERS Safety Report 10264743 (Version 1)
Quarter: 2014Q2

REPORT INFORMATION
  Report Type: Spontaneous
  Country: US (occurrence: None)
  Receive Date: 20140625
  Receipt Date: 20140625
  Transmission Date: 20141212
  Serious: Yes (Other)
  Sender: FDA-Public Use
  Company Number: None

PATIENT
  Age: 69 Year
  Sex: Female
  Weight: 75.4 kg

DRUGS (13)
  1. NOVOLOG [Suspect]
     Indication: TYPE 2 DIABETES MELLITUS
     Dosage: 30 UNITS BID SUBCUTANEOUS
     Route: 058
  2. NOVOLIN N [Concomitant]
  3. IBUPROFEN [Concomitant]
  4. GEMFIBROZIL [Concomitant]
  5. METFORMIN [Concomitant]
  6. OMEGA 3 [Concomitant]
  7. ACIDOPHILUS [Concomitant]
  8. VITAMIN D [Concomitant]
  9. SIMVASTATIN [Concomitant]
  10. METOPROLOL TARTRATE [Concomitant]
  11. NORVASC [Concomitant]
  12. LOSARTAN-HCTZ [Concomitant]
  13. CATAPRESS TABS [Concomitant]

REACTIONS (4)
  - Rash [None]
  - Urticaria [None]
  - Throat tightness [None]
  - No reaction on previous exposure to drug [None]
